FAERS Safety Report 12737850 (Version 1)
Quarter: 2016Q3

REPORT INFORMATION
  Report Type: Spontaneous
  Country: US (occurrence: US)
  Receive Date: 20160909
  Receipt Date: 20160909
  Transmission Date: 20161109
  Serious: No
  Sender: FDA-Public Use
  Company Number: None

PATIENT
  Age: 68 Year
  Sex: Female
  Weight: 85.27 kg

DRUGS (3)
  1. ETOPOSIDE (VP-16) [Suspect]
     Active Substance: ETOPOSIDE
     Dates: end: 20160730
  2. CISPLATIN. [Suspect]
     Active Substance: CISPLATIN
     Dates: end: 20160730
  3. BLEOMYCIN [Suspect]
     Active Substance: BLEOMYCIN SULFATE
     Dates: end: 20160726

REACTIONS (3)
  - Neutrophil count decreased [None]
  - Therapy cessation [None]
  - White blood cell count decreased [None]

NARRATIVE: CASE EVENT DATE: 20160809
